FAERS Safety Report 9963906 (Version 1)
Quarter: 2014Q1

REPORT INFORMATION
  Report Type: Spontaneous
  Country: DE (occurrence: DE)
  Receive Date: 20140305
  Receipt Date: 20140305
  Transmission Date: 20141002
  Serious: Yes (Other)
  Sender: FDA-Public Use
  Company Number: PHHY2014DE024892

PATIENT
  Age: 20 Year
  Sex: Female

DRUGS (4)
  1. VENLAFAXINE [Suspect]
     Indication: MAJOR DEPRESSION
     Dosage: 150 MG, UNK
  2. VENLAFAXINE [Suspect]
     Dosage: 225 MG, UNK
  3. VENLAFAXINE [Suspect]
     Dosage: 150 MG, UNK
  4. ANTICONCEPTION [Concomitant]

REACTIONS (8)
  - Parotitis [Recovered/Resolved]
  - Aptyalism [Unknown]
  - Influenza like illness [Recovered/Resolved]
  - Asthenia [Recovered/Resolved]
  - Parotid gland enlargement [Recovered/Resolved]
  - Leukocytosis [Recovered/Resolved]
  - Pyrexia [Recovered/Resolved]
  - Dry mouth [Unknown]
